FAERS Safety Report 7037893-8 (Version None)
Quarter: 2010Q4

REPORT INFORMATION
  Report Type: 
  Country: None (occurrence: None)
  Receive Date: 20101011
  Receipt Date: 20101004
  Transmission Date: 20110411
  Serious: Yes (Hospitalization, Other)
  Sender: FDA-Public Use
  Company Number: US-ELI_LILLY_AND_COMPANY-US201005000601

PATIENT
  Sex: Female
  Weight: 77.551 kg

DRUGS (7)
  1. BYETTA [Suspect]
     Dosage: UNK, UNK
     Route: 058
     Dates: end: 20090601
  2. NOVOLOG [Concomitant]
  3. METFORMIN [Concomitant]
  4. LEVEMIR [Concomitant]
  5. DICLOFENAC SODIUM [Concomitant]
  6. PAXIL [Concomitant]
  7. HYDROCODONE [Concomitant]

REACTIONS (1)
  - PANCREATITIS ACUTE [None]
